FAERS Safety Report 10170153 (Version 2)
Quarter: 2014Q2

REPORT INFORMATION
  Report Type: Report from Study
  Country: CA (occurrence: CA)
  Receive Date: 20140513
  Receipt Date: 20140620
  Transmission Date: 20141212
  Serious: Yes (Other)
  Sender: FDA-Public Use
  Company Number: CA-UCBSA-120571

PATIENT
  Age: 32 Year
  Sex: Female

DRUGS (4)
  1. CERTOLIZUMAB PEGOL [Suspect]
     Indication: RHEUMATOID ARTHRITIS
     Dosage: 400 MG, EV 2 WEEKS(QOW)
     Route: 058
     Dates: start: 20110401, end: 20110429
  2. CERTOLIZUMAB PEGOL [Suspect]
     Dosage: 200 MG, EV 2 WEEKS(QOW)
     Route: 058
     Dates: start: 20110513, end: 20120202
  3. CERTOLIZUMAB PEGOL [Suspect]
     Dosage: 200 MG, EV 2 WEEKS(QOW)
     Route: 058
     Dates: start: 20121107, end: 20140321
  4. CERTOLIZUMAB PEGOL [Suspect]
     Dosage: 200 MG, EV 2 WEEKS(QOW)
     Route: 058
     Dates: start: 20140425

REACTIONS (3)
  - Uterine infection [Recovered/Resolved]
  - Candida infection [Recovered/Resolved]
  - Stomatitis [Not Recovered/Not Resolved]
